FAERS Safety Report 11080727 (Version 1)
Quarter: 2015Q2

REPORT INFORMATION
  Report Type: Spontaneous
  Country: US (occurrence: None)
  Receive Date: 20150430
  Receipt Date: 20150430
  Transmission Date: 20150821
  Serious: Yes (Life-Threatening, Hospitalization)
  Sender: FDA-Public Use
  Company Number: None

PATIENT
  Age: 2 Month
  Sex: Female
  Weight: 10.43 kg

DRUGS (3)
  1. MIRALAX [Suspect]
     Active Substance: POLYETHYLENE GLYCOL 3350
     Indication: CONSTIPATION
     Dosage: 1/2 CAP, AS NEEDED, TAKEN BY MOUTH
     Route: 048
     Dates: start: 20150420, end: 20150421
  2. DITROPAN 0.3ML [Concomitant]
     Dosage: 0.3ML, BID.. STANDING FRAME
  3. SENNA 8.8MG [Concomitant]

REACTIONS (1)
  - Tonic convulsion [None]

NARRATIVE: CASE EVENT DATE: 20150422
